FAERS Safety Report 6447785-0 (Version None)
Quarter: 2009Q4

REPORT INFORMATION
  Report Type: 
  Country: None (occurrence: None)
  Receive Date: 20091120
  Receipt Date: 20091112
  Transmission Date: 20100525
  Serious: Yes (Other)
  Sender: FDA-Public Use
  Company Number: NZ-TEVA-214051ISR

PATIENT
  Sex: Female

DRUGS (2)
  1. COPAXONE [Suspect]
     Indication: MULTIPLE SCLEROSIS
     Route: 058
     Dates: start: 20080101
  2. COPAXONE [Concomitant]

REACTIONS (3)
  - ERYTHEMA MULTIFORME [None]
  - HYPERAESTHESIA [None]
  - LEUKOCYTOCLASTIC VASCULITIS [None]
